FAERS Safety Report 5108656-5 (Version None)
Quarter: 2006Q3

REPORT INFORMATION
  Report Type: 
  Country: None (occurrence: None)
  Receive Date: 20060915
  Receipt Date: 20060906
  Transmission Date: 20061208
  Serious: Yes (Other)
  Sender: FDA-Public Use
  Company Number: 2006BH013293

PATIENT
  Sex: Female

DRUGS (2)
  1. FENTANYL CITRATE [Suspect]
     Indication: PAIN
     Dosage: 0.5 ML; EVERY HR; ED
     Route: 008
     Dates: start: 20060903
  2. NORMAL SALINE [Concomitant]

REACTIONS (2)
  - OVERDOSE [None]
  - STUPOR [None]
